FAERS Safety Report 5301527-0 (Version None)
Quarter: 2007Q2

REPORT INFORMATION
  Report Type: 
  Country: None (occurrence: None)
  Receive Date: 20070412
  Receipt Date: 20070327
  Transmission Date: 20071010
  Serious: Yes (Other)
  Sender: FDA-Public Use
  Company Number: B0465078A

PATIENT
  Age: 27 Year
  Sex: Male

DRUGS (2)
  1. ACYCLOVIR (FORMULATION UNKNOWN) (ACYCLOVIR) (GENERIC) [Suspect]
     Indication: METASTASES TO MENINGES
     Dosage: 10 MG/KG / SEE DOSAGE TEXT / INTRAVENOUS
     Route: 042
  2. CEFTRIAXONE [Suspect]
     Indication: METASTASES TO MENINGES
     Dosage: 2 GRAM(S) / SEE DOSAGE TEXT

REACTIONS (4)
  - ENCEPHALITIS [None]
  - HERPES ZOSTER [None]
  - RENAL FAILURE ACUTE [None]
  - RHABDOMYOLYSIS [None]
